FAERS Safety Report 5342147-1 (Version None)
Quarter: 2007Q2

REPORT INFORMATION
  Report Type: 
  Country: None (occurrence: None)
  Receive Date: 20070601
  Receipt Date: 20070531
  Transmission Date: 20071010
  Serious: Yes (Hospitalization)
  Sender: FDA-Public Use
  Company Number: A0652705A

PATIENT
  Age: 60 Year
  Sex: Female
  Weight: 60 kg

DRUGS (5)
  1. LAPATINIB [Suspect]
     Dosage: 1500MG PER DAY
     Route: 048
     Dates: start: 20070112
  2. PACLITAXEL [Suspect]
     Dosage: 80MGM2 CYCLIC
     Route: 042
     Dates: start: 20070112
  3. KANGFUXIN [Concomitant]
  4. IMMUNE GLOBULIN INTRAVENOUS (HUMAN) [Concomitant]
  5. BUFFERIN [Concomitant]

REACTIONS (5)
  - BONE MARROW FAILURE [None]
  - FATIGUE [None]
  - MOUTH ULCERATION [None]
  - NEUTROPENIA [None]
  - PYREXIA [None]
